FAERS Safety Report 25557764 (Version 2)
Quarter: 2025Q3

REPORT INFORMATION
  Report Type: Spontaneous
  Country: US (occurrence: US)
  Receive Date: 20250715
  Receipt Date: 20250806
  Transmission Date: 20251021
  Serious: Yes (Other)
  Sender: NOVO NORDISK
  Company Number: US-NOVOPROD-1439385

PATIENT
  Age: 67 Year
  Sex: Female

DRUGS (1)
  1. OZEMPIC [Suspect]
     Active Substance: SEMAGLUTIDE
     Indication: Type 2 diabetes mellitus
     Dosage: 0.25 MG, QW
     Dates: start: 20250319, end: 20250420

REACTIONS (4)
  - Cardiac flutter [Recovered/Resolved]
  - Cardiac flutter [Recovered/Resolved]
  - Palpitations [Recovered/Resolved]
  - Blood glucose decreased [Unknown]

NARRATIVE: CASE EVENT DATE: 20250420
